FAERS Safety Report 4658979-9 (Version None)
Quarter: 2005Q2

REPORT INFORMATION
  Report Type: 
  Country: None (occurrence: None)
  Receive Date: 20050511
  Receipt Date: 20050506
  Transmission Date: 20051028
  Serious: Yes (Other)
  Sender: FDA-Public Use
  Company Number: PHEH2005US05244

PATIENT
  Age: 24 Year
  Sex: Female

DRUGS (3)
  1. ZELNORM [Suspect]
     Dosage: 6 MG, BID
     Route: 048
     Dates: start: 20040101, end: 20050101
  2. ZELNORM [Suspect]
     Dosage: 6 MG, BID
     Route: 048
     Dates: start: 20050410, end: 20050504
  3. ORTHO TRI-CYCLEN LO [Concomitant]
     Indication: CONTRACEPTION
     Dates: start: 20020101

REACTIONS (2)
  - BLOOD AMYLASE INCREASED [None]
  - LIPASE INCREASED [None]
